FAERS Safety Report 18522372 (Version 1)
Quarter: 2020Q4

REPORT INFORMATION
  Report Type: Spontaneous
  Country: SK (occurrence: SK)
  Receive Date: 20201119
  Receipt Date: 20201119
  Transmission Date: 20210114
  Serious: Yes (Hospitalization, Other)
  Sender: FDA-Public Use
  Company Number: SK-B.I. PHARMACEUTICALS,INC./RIDGEFIELD-2020-BI-061379

PATIENT
  Age: 83 Year
  Sex: Male

DRUGS (6)
  1. PRADAXA [Suspect]
     Active Substance: DABIGATRAN ETEXILATE MESYLATE
     Indication: ATRIAL FIBRILLATION
     Route: 048
  2. XALATAN [Concomitant]
     Active Substance: LATANOPROST
     Dosage: 1 DROP IN THE EVENINIG
  3. SORTIS [Concomitant]
     Active Substance: ATORVASTATIN
  4. TRITACE [Concomitant]
     Active Substance: RAMIPRIL
     Dosage: 2X1/2 TBL
     Route: 048
  5. BETALOC ZOK [Concomitant]
     Active Substance: METOPROLOL SUCCINATE
     Dosage: 2X1
     Route: 048
  6. TAMSULOSIN [Concomitant]
     Active Substance: TAMSULOSIN
     Dosage: 1 TBL IN THE EVENINING
     Route: 048

REACTIONS (5)
  - Speech disorder [Recovered/Resolved]
  - Haemorrhagic stroke [Recovered/Resolved]
  - Movement disorder [Unknown]
  - Fall [Unknown]
  - Hemiparesis [Unknown]

NARRATIVE: CASE EVENT DATE: 20201111
